FAERS Safety Report 9882682 (Version 2)
Quarter: 2014Q2

REPORT INFORMATION
  Report Type: Spontaneous
  Country: IT (occurrence: IT)
  Receive Date: 20140207
  Receipt Date: 20140410
  Transmission Date: 20141212
  Serious: Yes (Hospitalization)
  Sender: FDA-Public Use
  Company Number: IT-ABBVIE-14P-083-1198978-00

PATIENT
  Age: 42 Year
  Sex: Male

DRUGS (4)
  1. DEPAKINE [Suspect]
     Indication: DRUG ABUSE
     Route: 048
     Dates: start: 20131212, end: 20131212
  2. ZOLOFT [Suspect]
     Indication: DRUG ABUSE
     Route: 048
     Dates: start: 20131212, end: 20131212
  3. STILNOX [Suspect]
     Indication: DRUG ABUSE
     Route: 048
     Dates: start: 20131212, end: 20131212
  4. LEXOTAN [Suspect]
     Indication: DRUG ABUSE
     Route: 048
     Dates: start: 20131212, end: 20131212

REACTIONS (2)
  - Drug abuse [Unknown]
  - Sedation [Unknown]
